FAERS Safety Report 24801776 (Version 1)
Quarter: 2025Q1

REPORT INFORMATION
  Report Type: Report from Study
  Country: ID (occurrence: ID)
  Receive Date: 20250102
  Receipt Date: 20250102
  Transmission Date: 20250409
  Serious: Yes (Death, Other)
  Sender: ALEXION PHARMACEUTICALS
  Company Number: ID-AstraZeneca-CH-00775507A

PATIENT
  Age: 73 Year

DRUGS (4)
  1. DURVALUMAB [Suspect]
     Active Substance: DURVALUMAB
     Route: 065
  2. DURVALUMAB [Suspect]
     Active Substance: DURVALUMAB
     Route: 065
  3. DURVALUMAB [Suspect]
     Active Substance: DURVALUMAB
     Route: 065
  4. DURVALUMAB [Suspect]
     Active Substance: DURVALUMAB
     Route: 065

REACTIONS (1)
  - Death [Fatal]
